FAERS Safety Report 19001595 (Version 1)
Quarter: 2021Q1

REPORT INFORMATION
  Report Type: Spontaneous
  Country: US (occurrence: US)
  Receive Date: 20210311
  Receipt Date: 20210311
  Transmission Date: 20210420
  Serious: Yes (Hospitalization)
  Sender: FDA-Public Use
  Company Number: None

PATIENT
  Age: 38 Year
  Sex: Female
  Weight: 166.95 kg

DRUGS (1)
  1. SUBLOCADE [Suspect]
     Active Substance: BUPRENORPHINE
     Indication: CELLULITIS
     Dosage: ?          OTHER FREQUENCY:Q28 DAYS;?
     Route: 058
     Dates: start: 20210222

REACTIONS (5)
  - Injection site pain [None]
  - Drug ineffective [None]
  - Injection site erythema [None]
  - Injection site warmth [None]
  - Staphylococcus test positive [None]

NARRATIVE: CASE EVENT DATE: 20210306
